FAERS Safety Report 8429676 (Version 3)
Quarter: 2013Q3

REPORT INFORMATION
  Report Type: Spontaneous
  Country: US (occurrence: US)
  Receive Date: 20120227
  Receipt Date: 20130816
  Transmission Date: 20140515
  Serious: Yes (Other)
  Sender: FDA-Public Use
  Company Number: US-ASTRAZENECA-2012SE11794

PATIENT
  Age: 71 Year
  Sex: Female
  Weight: 104.3 kg

DRUGS (5)
  1. ATENOLOL [Suspect]
     Route: 065
  2. NEXIUM [Suspect]
     Indication: GASTROOESOPHAGEAL REFLUX DISEASE
     Route: 048
  3. PRODAXRA [Concomitant]
  4. SYNTHROID [Concomitant]
  5. CELEBREX [Concomitant]

REACTIONS (2)
  - Cerebrovascular accident [Unknown]
  - Arthritis [Unknown]
